FAERS Safety Report 13269381 (Version 1)
Quarter: 2017Q1

REPORT INFORMATION
  Report Type: Spontaneous
  Country: IT (occurrence: IT)
  Receive Date: 20170224
  Receipt Date: 20170224
  Transmission Date: 20170428
  Serious: Yes (Other)
  Sender: FDA-Public Use
  Company Number: IT-PFIZER INC-2017077858

PATIENT
  Age: 54 Year
  Sex: Female

DRUGS (3)
  1. TOBRAMYCIN. [Suspect]
     Active Substance: TOBRAMYCIN
     Indication: WHITE BLOOD CELL DISORDER
     Dosage: 25 MG, UNK
     Route: 033
  2. VANCOMYCIN HCL [Suspect]
     Active Substance: VANCOMYCIN HYDROCHLORIDE
     Indication: WHITE BLOOD CELL DISORDER
     Dosage: 125 MG, DAILY
     Route: 033
  3. TACROLIMUS. [Suspect]
     Active Substance: TACROLIMUS
     Indication: IMMUNOSUPPRESSANT DRUG THERAPY
     Dosage: 1 MG, 1X/DAY

REACTIONS (9)
  - Pancreatitis [Unknown]
  - Pneumonia [Unknown]
  - Pleural effusion [Unknown]
  - Pancreatic pseudocyst [Unknown]
  - Fungal peritonitis [Unknown]
  - Pulmonary embolism [Unknown]
  - Systemic candida [Recovered/Resolved]
  - Acinetobacter infection [Recovered/Resolved]
  - Sepsis [Recovered/Resolved]
